FAERS Safety Report 9374104 (Version 2)
Quarter: 2013Q3

REPORT INFORMATION
  Report Type: Report from Study
  Country: AU (occurrence: AU)
  Receive Date: 20130628
  Receipt Date: 20130808
  Transmission Date: 20140515
  Serious: Yes (Hospitalization)
  Sender: FDA-Public Use
  Company Number: AU-BIOGENIDEC-2013BI054286

PATIENT
  Age: 58 Year
  Sex: Female
  Weight: 54 kg

DRUGS (4)
  1. BG00012 [Suspect]
     Indication: MULTIPLE SCLEROSIS
     Route: 048
     Dates: start: 20100527
  2. BLACKMORES MEGA B COMPLEX [Concomitant]
     Indication: SUPPLEMENTATION THERAPY
     Dates: start: 1992
  3. PANADOL [Concomitant]
     Indication: MIGRAINE
     Dates: start: 1998
  4. NEUROFEN [Concomitant]
     Indication: MIGRAINE
     Dates: start: 2007

REACTIONS (1)
  - Migraine [Recovered/Resolved]
